FAERS Safety Report 4899615-6 (Version None)
Quarter: 2006Q1

REPORT INFORMATION
  Report Type: 
  Country: None (occurrence: None)
  Receive Date: 20060118
  Receipt Date: 20050824
  Transmission Date: 20060701
  Serious: No
  Sender: FDA-Public Use
  Company Number: 2005001662

PATIENT
  Age: 71 Year
  Sex: Female

DRUGS (4)
  1. TARCEVA [Suspect]
     Indication: LUNG NEOPLASM MALIGNANT
     Dosage: ORAL
     Route: 048
  2. DYAZIDE [Concomitant]
  3. ZOCOR [Concomitant]
  4. PRILOSEC [Concomitant]

REACTIONS (1)
  - PARONYCHIA [None]
